FAERS Safety Report 9020578 (Version 1)
Quarter: 2013Q1

REPORT INFORMATION
  Report Type: Spontaneous
  Country: US (occurrence: US)
  Receive Date: 20130119
  Receipt Date: 20130119
  Transmission Date: 20140127
  Serious: No
  Sender: FDA-Public Use
  Company Number: US-ALLERGAN-1207231US

PATIENT
  Age: 40 Year
  Sex: Female

DRUGS (3)
  1. BOTOX? [Suspect]
     Indication: MIGRAINE
     Dosage: 200 UNITS, SINGLE
     Route: 030
  2. BOTOX? [Suspect]
     Dosage: 100 UNK, UNK
  3. DYSPORT [Suspect]
     Indication: PRODUCT USED FOR UNKNOWN INDICATION

REACTIONS (7)
  - Muscle spasms [Unknown]
  - Diplopia [Recovered/Resolved]
  - Vision blurred [Unknown]
  - Dysphagia [Recovered/Resolved]
  - Neck pain [Unknown]
  - Muscular weakness [Unknown]
  - Pruritus [Unknown]
